FAERS Safety Report 14381870 (Version 5)
Quarter: 2018Q2

REPORT INFORMATION
  Report Type: Spontaneous
  Country: US (occurrence: US)
  Receive Date: 20180112
  Receipt Date: 20180608
  Transmission Date: 20180711
  Serious: Yes (Hospitalization, Disabling, Other)
  Sender: FDA-Public Use
  Company Number: US-009507513-1801USA003950

PATIENT
  Sex: Female
  Weight: 75.28 kg

DRUGS (2)
  1. NUVARING [Suspect]
     Active Substance: ETHINYL ESTRADIOL\ETONOGESTREL
     Dosage: 1 DF, UNK
     Route: 067
     Dates: start: 200811, end: 200903
  2. NUVARING [Suspect]
     Active Substance: ETHINYL ESTRADIOL\ETONOGESTREL
     Indication: CONTRACEPTION
     Dosage: 1 DF, UNK
     Route: 067
     Dates: start: 2012, end: 20150307

REACTIONS (42)
  - Depression [Unknown]
  - Memory impairment [Unknown]
  - Respiratory disorder [Unknown]
  - Seizure [Recovering/Resolving]
  - Bradyarrhythmia [Unknown]
  - Insulin resistance [Unknown]
  - Fatigue [Unknown]
  - Endometriosis [Unknown]
  - Metabolic syndrome [Unknown]
  - Cognitive disorder [Not Recovered/Not Resolved]
  - Coagulopathy [Unknown]
  - Attention deficit/hyperactivity disorder [Unknown]
  - Thyroid mass [Unknown]
  - Vaginal discharge [Unknown]
  - Drug hypersensitivity [Unknown]
  - Insulin resistant diabetes [Unknown]
  - Pneumonia [Unknown]
  - Migraine [Not Recovered/Not Resolved]
  - Maternal exposure before pregnancy [Recovered/Resolved]
  - Rash [Unknown]
  - Perineal injury [Unknown]
  - Mitral valve incompetence [Unknown]
  - Substance abuse [Unknown]
  - Tonsillectomy [Unknown]
  - Nasal congestion [Unknown]
  - Paranasal cyst [Not Recovered/Not Resolved]
  - Stress [Unknown]
  - Smear cervix abnormal [Unknown]
  - Cervicitis [Unknown]
  - Pulmonary hypertension [Unknown]
  - Tricuspid valve incompetence [Unknown]
  - Hyperinsulinaemia [Unknown]
  - Anxiety [Not Recovered/Not Resolved]
  - Acute sinusitis [Unknown]
  - Hypercholesterolaemia [Unknown]
  - Cerebral venous thrombosis [Recovered/Resolved]
  - Intentional self-injury [Unknown]
  - Sinusitis [Unknown]
  - Cervical dysplasia [Unknown]
  - Headache [Not Recovered/Not Resolved]
  - Drug hypersensitivity [Unknown]
  - Dysmenorrhoea [Unknown]

NARRATIVE: CASE EVENT DATE: 201104
